FAERS Safety Report 8772682 (Version 1)
Quarter: 2012Q4

REPORT INFORMATION
  Report Type: 
  Country: US (occurrence: US)
  Receive Date: 20120905
  Receipt Date: 20120905
  Transmission Date: 20130627
  Serious: Yes (Other)
  Sender: FDA-Public Use
  Company Number: US-JNJFOC-20120813445

PATIENT
  Sex: Female
  Weight: 68.04 kg

DRUGS (2)
  1. ORTHO EVRA [Suspect]
     Indication: CONTRACEPTION
     Route: 062
     Dates: start: 2001, end: 2002
  2. ORTHO EVRA [Suspect]
     Indication: CONTRACEPTION
     Route: 062
     Dates: start: 201101, end: 201109

REACTIONS (7)
  - Thrombosis [Not Recovered/Not Resolved]
  - Amnesia [Not Recovered/Not Resolved]
  - Thought blocking [Not Recovered/Not Resolved]
  - Oral discomfort [Recovered/Resolved]
  - Vaginal haemorrhage [Recovered/Resolved]
  - Menstruation irregular [Unknown]
  - Alopecia [Not Recovered/Not Resolved]
